FAERS Safety Report 22129974 (Version 1)
Quarter: 2023Q1

REPORT INFORMATION
  Report Type: Spontaneous
  Country: US (occurrence: US)
  Receive Date: 20230323
  Receipt Date: 20230323
  Transmission Date: 20230418
  Serious: Yes (Death, Life-Threatening, Hospitalization)
  Sender: FDA-Public Use
  Company Number: US-MYLANLABS-2023M1030406

PATIENT
  Age: 35 Year
  Sex: Female

DRUGS (3)
  1. ONDANSETRON [Suspect]
     Active Substance: ONDANSETRON
     Indication: Alcohol poisoning
     Dosage: UNK, INTRAVENOUS INFUSION
     Route: 042
  2. KETOROLAC [Suspect]
     Active Substance: KETOROLAC TROMETHAMINE
     Indication: Alcohol poisoning
     Dosage: UNK, INTRAVENOUS INFUSION
     Route: 042
  3. VITAMINS [Concomitant]
     Active Substance: VITAMINS
     Indication: Alcohol poisoning
     Dosage: UNK, INTRAVENOUS INFUSION
     Route: 042

REACTIONS (6)
  - Cardiac arrest [Fatal]
  - Ventricular fibrillation [Fatal]
  - Ventricular tachycardia [Fatal]
  - Hypokalaemia [Recovered/Resolved]
  - Hypomagnesaemia [Recovered/Resolved]
  - Cerebral disorder [Not Recovered/Not Resolved]
